FAERS Safety Report 8538955-6 (Version None)
Quarter: 2012Q3

REPORT INFORMATION
  Report Type: 
  Country: None (occurrence: None)
  Receive Date: 20120726
  Receipt Date: 20120720
  Transmission Date: 20120928
  Serious: Yes (Death, Hospitalization)
  Sender: FDA-Public Use
  Company Number: PHHY2012JP061096

PATIENT
  Age: 72 Year
  Sex: Female

DRUGS (4)
  1. TELMISARTAN [Concomitant]
     Route: 048
     Dates: end: 20120701
  2. TEGRETOL [Suspect]
     Dosage: 200MG TWO TABLETS DAILY
     Route: 048
     Dates: start: 20120509
  3. TEGRETOL [Suspect]
     Indication: TRIGEMINAL NEURALGIA
     Dosage: 200MG TWO TABLETS DAILY
     Route: 048
     Dates: start: 20090313
  4. TEGRETOL [Suspect]
     Dosage: 200MG TWO TABLETS DAILY
     Route: 048
     Dates: start: 20120529, end: 20120618

REACTIONS (7)
  - HEPATITIS FULMINANT [None]
  - PYREXIA [None]
  - ECZEMA [None]
  - HEPATIC FUNCTION ABNORMAL [None]
  - RASH [None]
  - RASH GENERALISED [None]
  - DEPRESSED LEVEL OF CONSCIOUSNESS [None]
